FAERS Safety Report 4263381-8 (Version None)
Quarter: 2004Q1

REPORT INFORMATION
  Report Type: 
  Country: None (occurrence: None)
  Receive Date: 20040104
  Receipt Date: 20040104
  Transmission Date: 20041129
  Serious: Yes (Other)
  Sender: FDA-Public Use
  Company Number: None

PATIENT
  Sex: Male
  Weight: 123.3784 kg

DRUGS (10)
  1. CITALOPRAM 40 MG FOREST [Suspect]
     Indication: DEPRESSION
     Dosage: 40 MG QD ORAL
     Route: 048
     Dates: start: 20030930, end: 20031030
  2. CITALOPRAM 40 MG FOREST [Suspect]
     Indication: DEPRESSION
     Dosage: 20 MG QD ORAL
     Route: 048
     Dates: start: 20030828, end: 20030930
  3. SIMVASTATIN [Concomitant]
  4. TESTOSTERONE CYPIONATE [Concomitant]
  5. NICOTINE [Concomitant]
  6. DILTIAZEM [Concomitant]
  7. VIOXX [Concomitant]
  8. HYZAAR [Concomitant]
  9. LANTUS [Concomitant]
  10. ULTRAM [Concomitant]

REACTIONS (2)
  - OEDEMA MOUTH [None]
  - TONGUE OEDEMA [None]
